FAERS Safety Report 18204167 (Version 5)
Quarter: 2021Q2

REPORT INFORMATION
  Report Type: Report from Study
  Country: None (occurrence: US)
  Receive Date: 20200828
  Receipt Date: 20210414
  Transmission Date: 20210717
  Serious: Yes (Hospitalization, Other)
  Sender: FDA-Public Use
  Company Number: US-ABBVIE-20K-163-3473138-00

PATIENT
  Age: 52 Year
  Sex: Female

DRUGS (4)
  1. HUMIRA [Suspect]
     Active Substance: ADALIMUMAB
     Indication: CROHN^S DISEASE
     Dosage: DAY 1
     Route: 058
     Dates: start: 20200602, end: 20200602
  2. HUMIRA [Suspect]
     Active Substance: ADALIMUMAB
     Route: 058
     Dates: start: 20200616
  3. HUMIRA [Suspect]
     Active Substance: ADALIMUMAB
     Indication: CROHN^S DISEASE
     Route: 058
     Dates: start: 2020, end: 20210117
  4. HUMIRA [Suspect]
     Active Substance: ADALIMUMAB
     Dosage: DAY 15
     Route: 058
     Dates: start: 20200616, end: 20200616

REACTIONS (25)
  - Menopause [Unknown]
  - Diarrhoea [Not Recovered/Not Resolved]
  - Chills [Not Recovered/Not Resolved]
  - Visual impairment [Not Recovered/Not Resolved]
  - Insomnia [Unknown]
  - Constipation [Not Recovered/Not Resolved]
  - Paraesthesia [Unknown]
  - Fistula [Unknown]
  - Paraesthesia [Unknown]
  - Bladder repair [Unknown]
  - Weight decreased [Unknown]
  - Stress [Unknown]
  - Abdominal pain [Unknown]
  - Alopecia [Unknown]
  - Appendicectomy [Unknown]
  - Incision site complication [Unknown]
  - Abnormal faeces [Not Recovered/Not Resolved]
  - Headache [Unknown]
  - Hepatic enzyme increased [Unknown]
  - Obstruction [Unknown]
  - Hyperhidrosis [Not Recovered/Not Resolved]
  - Colectomy [Unknown]
  - Fatigue [Unknown]
  - Abdominal distension [Unknown]
  - Alopecia [Unknown]

NARRATIVE: CASE EVENT DATE: 2020
